FAERS Safety Report 7293270-6 (Version None)
Quarter: 2011Q1

REPORT INFORMATION
  Report Type: 
  Country: None (occurrence: None)
  Receive Date: 20110210
  Receipt Date: 20110210
  Transmission Date: 20110831
  Serious: Yes (Other)
  Sender: FDA-Public Use
  Company Number: None

PATIENT
  Age: 71 Year
  Sex: Male

DRUGS (9)
  1. DEXAMETHASONE [Concomitant]
  2. OMEPRAZOLE [Concomitant]
  3. REVLIMID [Suspect]
     Indication: MULTIPLE MYELOMA
     Dosage: 5 MG DAILY ORALLY
     Route: 048
     Dates: start: 20090701
  4. METOPROLOL TARTRATE [Concomitant]
  5. ZOLPIDEM [Concomitant]
  6. TERAZOSIN [Concomitant]
  7. CULTORELLE [Concomitant]
  8. HYDROMORPHONE HCL [Concomitant]
  9. MORPHINE [Concomitant]

REACTIONS (5)
  - PAIN IN EXTREMITY [None]
  - PULMONARY EMBOLISM [None]
  - CHEST DISCOMFORT [None]
  - DEEP VEIN THROMBOSIS [None]
  - FATIGUE [None]
